FAERS Safety Report 20101357 (Version 1)
Quarter: 2021Q4

REPORT INFORMATION
  Report Type: Spontaneous
  Country: US (occurrence: US)
  Receive Date: 20211123
  Receipt Date: 20211123
  Transmission Date: 20220304
  Serious: Yes (Other)
  Sender: FDA-Public Use
  Company Number: US-COOPERSURGICAL, INC.-US-2021CPS002702

PATIENT
  Age: 43 Year
  Sex: Female
  Weight: 71.655 kg

DRUGS (13)
  1. PARAGARD T 380A [Suspect]
     Active Substance: COPPER
     Indication: Contraception
     Dosage: UNK
     Route: 015
     Dates: start: 2013, end: 20210915
  2. PARAGARD T 380A [Suspect]
     Active Substance: COPPER
     Dosage: UNK
     Route: 015
     Dates: start: 20210915
  3. TYLENOL                            /00020001/ [Concomitant]
     Route: 065
  4. PROAIR                             /00139502/ [Concomitant]
     Dosage: 90 MICROGRAM, PRN
     Route: 065
  5. ASPIRIN                            /00002701/ [Concomitant]
     Dosage: 325 MG, BID
     Route: 048
  6. FLEXERIL                           /00428402/ [Concomitant]
     Dosage: 5 MG, BID
     Route: 048
  7. LEXAPRO [Concomitant]
     Active Substance: ESCITALOPRAM OXALATE
     Dosage: 20 MG, QD
     Route: 048
  8. FLONASE                            /00908302/ [Concomitant]
     Dosage: 50 MICROGRAM, BID
     Route: 045
  9. CLARITIN                           /00413701/ [Concomitant]
     Dosage: 10 MG, QD
     Route: 048
  10. TRAMADOL [Concomitant]
     Active Substance: TRAMADOL
     Dosage: 50 MG, PRN
     Route: 048
  11. RETINOL ACETAS [Concomitant]
     Route: 061
  12. CELACYN [Concomitant]
     Indication: Product used for unknown indication
     Route: 061
  13. ACETAMINOPHEN [Concomitant]
     Active Substance: ACETAMINOPHEN
     Indication: Product used for unknown indication
     Dosage: 500 MG, PRN
     Route: 048

REACTIONS (11)
  - Cervical cyst [Not Recovered/Not Resolved]
  - Ovarian cyst [Not Recovered/Not Resolved]
  - Endometritis [Unknown]
  - Uterine leiomyoma [Not Recovered/Not Resolved]
  - Device breakage [Recovered/Resolved]
  - Foreign body in reproductive tract [Recovered/Resolved]
  - Complication of device removal [Recovered/Resolved]
  - Embedded device [Recovered/Resolved]
  - Abnormal uterine bleeding [Unknown]
  - Menopausal symptoms [Unknown]
  - Device dislocation [Recovered/Resolved]

NARRATIVE: CASE EVENT DATE: 20170201
